FAERS Safety Report 6573334-2 (Version None)
Quarter: 2010Q1

REPORT INFORMATION
  Report Type: 
  Country: None (occurrence: None)
  Receive Date: 20100208
  Receipt Date: 20100127
  Transmission Date: 20100710
  Serious: Yes (Hospitalization)
  Sender: FDA-Public Use
  Company Number: PL-PFIZER INC-2010011386

PATIENT
  Age: 18 Year
  Sex: Female

DRUGS (1)
  1. VFEND [Suspect]
     Indication: FUNGAL INFECTION
     Dosage: UNK
     Dates: start: 20091223, end: 20100121

REACTIONS (6)
  - ALTERED STATE OF CONSCIOUSNESS [None]
  - BRAIN INJURY [None]
  - ENCEPHALITIS [None]
  - HALLUCINATION, VISUAL [None]
  - NYSTAGMUS [None]
  - SENSORY DISTURBANCE [None]
